FAERS Safety Report 9225814 (Version 1)
Quarter: 2013Q2

REPORT INFORMATION
  Report Type: Spontaneous
  Country: US (occurrence: None)
  Receive Date: 20130410
  Receipt Date: 20130410
  Transmission Date: 20140414
  Serious: Yes (Hospitalization)
  Sender: FDA-Public Use
  Company Number: None

PATIENT
  Age: 65 Year
  Sex: Female
  Weight: 117.7 kg

DRUGS (10)
  1. GLIMEPIRIDE [Suspect]
     Indication: DIABETES MELLITUS
     Dosage: 2MG DAILY PO
     Route: 048
  2. NEXIUM [Concomitant]
  3. LASIX [Concomitant]
  4. LORAZEPAM [Concomitant]
  5. KCL [Concomitant]
  6. BIFERA [Concomitant]
  7. PRAVASTATIN [Concomitant]
  8. AMITRIPTYLINE [Concomitant]
  9. METOPROLOL TARTRATE [Concomitant]
  10. WELLBUTRIN XL [Concomitant]

REACTIONS (4)
  - Hypoglycaemia [None]
  - Asthenia [None]
  - Amnesia [None]
  - Fall [None]
